FAERS Safety Report 7808374-6 (Version None)
Quarter: 2011Q4

REPORT INFORMATION
  Report Type: 
  Country: None (occurrence: None)
  Receive Date: 20111011
  Receipt Date: 20111011
  Transmission Date: 20120403
  Serious: Yes (Hospitalization)
  Sender: FDA-Public Use
  Company Number: None

PATIENT
  Sex: Female
  Weight: 61.8 kg

DRUGS (5)
  1. PREDNISONE [Suspect]
     Dosage: 64 MG
  2. VINCRISTINE SULFATE [Suspect]
     Dosage: 2 MG
  3. DOXORUBICIN HCL [Suspect]
     Dosage: 81 MG
  4. RITUXIMAB (MOAB C2B8 ANTI CD20, CHIMERIC) [Suspect]
     Dosage: 600 MG
  5. CYCLOPHOSPHAMIDE [Suspect]
     Dosage: 1215 MG

REACTIONS (5)
  - FATIGUE [None]
  - PULMONARY EMBOLISM [None]
  - RENAL IMPAIRMENT [None]
  - NAUSEA [None]
  - HEPATIC ENZYME INCREASED [None]
